FAERS Safety Report 4358609-X (Version None)
Quarter: 2004Q2

REPORT INFORMATION
  Report Type: 
  Country: None (occurrence: None)
  Receive Date: 20040514
  Receipt Date: 20040504
  Transmission Date: 20050107
  Serious: Yes (Hospitalization, Other)
  Sender: FDA-Public Use
  Company Number: FRWYE739604MAY04

PATIENT
  Sex: Female

DRUGS (1)
  1. OXAZEPAM [Suspect]
     Dosage: 50 MG 4X PER 1 DAY
     Route: 048

REACTIONS (7)
  - DRUG EXPOSURE DURING PREGNANCY [None]
  - DRUG WITHDRAWAL SYNDROME NEONATAL [None]
  - FEEDING PROBLEM IN NEWBORN [None]
  - FOETAL GROWTH RETARDATION [None]
  - HIGH-PITCHED CRYING [None]
  - HYPERTONIA NEONATAL [None]
  - TREMOR [None]
